FAERS Safety Report 22308081 (Version 6)
Quarter: 2023Q4

REPORT INFORMATION
  Report Type: Spontaneous
  Country: US (occurrence: US)
  Receive Date: 20230511
  Receipt Date: 20231003
  Transmission Date: 20240109
  Serious: No
  Sender: FDA-Public Use
  Company Number: US-PFIZER INC-202300178303

PATIENT
  Age: 10 Year
  Sex: Male

DRUGS (2)
  1. GENOTROPIN [Suspect]
     Active Substance: SOMATROPIN
     Dosage: 1.2 MG
  2. GENOTROPIN [Suspect]
     Active Substance: SOMATROPIN
     Dosage: 1.6 MG (UNDER SKIN)
     Route: 058

REACTIONS (5)
  - Wrong technique in product usage process [Unknown]
  - Device breakage [Unknown]
  - Device leakage [Unknown]
  - Device malfunction [Unknown]
  - Drug dose omission by device [Unknown]
